FAERS Safety Report 6885204-0 (Version None)
Quarter: 2010Q3

REPORT INFORMATION
  Report Type: 
  Country: None (occurrence: None)
  Receive Date: 20100727
  Receipt Date: 20100714
  Transmission Date: 20110219
  Serious: Yes (Other)
  Sender: FDA-Public Use
  Company Number: DE-BAXTER-2010BH019080

PATIENT
  Sex: Female

DRUGS (4)
  1. ENDOXAN BAXTER [Suspect]
     Indication: SYSTEMIC LUPUS ERYTHEMATOSUS
     Route: 042
  2. XIPAMIDE [Concomitant]
     Indication: NEPHROTIC SYNDROME
     Route: 048
  3. FUROSEMIDE [Concomitant]
     Indication: NEPHROTIC SYNDROME
     Dosage: DAILY DOSE: 6 DF DOSAGE FORM EVERY DAY
     Route: 065
  4. SIMVASTATIN [Concomitant]
     Indication: NEPHROTIC SYNDROME
     Dosage: DAILY DOSE: 20 MG MILLIGRAM(S) EVERY DAY
     Route: 048

REACTIONS (2)
  - ARTHRALGIA [None]
  - TENDONITIS [None]
